FAERS Safety Report 11785684 (Version 4)
Quarter: 2016Q1

REPORT INFORMATION
  Report Type: Spontaneous
  Country: US (occurrence: US)
  Receive Date: 20151130
  Receipt Date: 20160120
  Transmission Date: 20160525
  Serious: Yes (Death, Hospitalization, Other)
  Sender: FDA-Public Use
  Company Number: US-009507513-1511USA014252

PATIENT
  Age: 73 Year
  Sex: Female
  Weight: 42.63 kg

DRUGS (3)
  1. EMEND [Suspect]
     Active Substance: APREPITANT
     Indication: PROPHYLAXIS OF NAUSEA AND VOMITING
     Dosage: 125 MG, UNK
     Route: 048
     Dates: start: 20150504, end: 20150529
  2. CISPLATIN. [Concomitant]
     Active Substance: CISPLATIN
     Dosage: 80 MG, Q3W
     Route: 042
     Dates: start: 201504
  3. PEMETREXED DISODIUM [Concomitant]
     Active Substance: PEMETREXED DISODIUM
     Dosage: 700 MG, Q3W
     Route: 042
     Dates: start: 201504

REACTIONS (3)
  - Pleural effusion [Unknown]
  - Adverse event [Unknown]
  - Lung neoplasm malignant [Fatal]

NARRATIVE: CASE EVENT DATE: 201506
